FAERS Safety Report 25795016 (Version 1)
Quarter: 2025Q3

REPORT INFORMATION
  Report Type: Report from Study
  Country: US (occurrence: US)
  Receive Date: 20250912
  Receipt Date: 20250912
  Transmission Date: 20251021
  Serious: Yes (Other)
  Sender: ABBVIE
  Company Number: US-ABBVIE-6452410

PATIENT
  Sex: Female

DRUGS (1)
  1. SKYRIZI [Suspect]
     Active Substance: RISANKIZUMAB-RZAA
     Indication: Crohn^s disease
     Route: 058
     Dates: start: 20240802

REACTIONS (6)
  - Squamous cell carcinoma of skin [Unknown]
  - Fall [Unknown]
  - Rash [Unknown]
  - Sternal injury [Unknown]
  - Unevaluable event [Unknown]
  - Skin disorder [Unknown]
